FAERS Safety Report 24761323 (Version 1)
Quarter: 2024Q4

REPORT INFORMATION
  Report Type: Spontaneous
  Country: CN (occurrence: CN)
  Receive Date: 20241220
  Receipt Date: 20241220
  Transmission Date: 20250115
  Serious: Yes (Hospitalization)
  Sender: NOVARTIS
  Company Number: CN-002147023-NVSC2024CN238526

PATIENT
  Age: 47 Year
  Sex: Male

DRUGS (9)
  1. CYCLOSPORINE [Suspect]
     Active Substance: CYCLOSPORINE
     Indication: Chemotherapy
     Dosage: 250 MG, QD (PUMP INJECTION)
     Route: 065
     Dates: start: 20241120, end: 20241129
  2. CYCLOSPORINE [Suspect]
     Active Substance: CYCLOSPORINE
     Indication: Prophylaxis against transplant rejection
  3. THIOTEPA [Suspect]
     Active Substance: THIOTEPA
     Indication: Chemotherapy
     Dosage: 300 MG, QD
     Route: 041
     Dates: start: 20241108, end: 20241108
  4. THIOTEPA [Suspect]
     Active Substance: THIOTEPA
     Dosage: 400 MG, QD
     Route: 041
     Dates: start: 20241109, end: 20241109
  5. CYCLOPHOSPHAMIDE [Suspect]
     Active Substance: CYCLOPHOSPHAMIDE
     Indication: Chemotherapy
     Dosage: 1.8 G, QD
     Route: 041
     Dates: start: 20241118, end: 20241118
  6. CYCLOPHOSPHAMIDE [Suspect]
     Active Substance: CYCLOPHOSPHAMIDE
     Indication: Prophylaxis against graft versus host disease
     Dosage: 3.2 G, QD
     Route: 041
     Dates: start: 20241119, end: 20241119
  7. FLUDARABINE PHOSPHATE [Suspect]
     Active Substance: FLUDARABINE PHOSPHATE
     Indication: Chemotherapy
     Dosage: 50 MG, QD
     Route: 041
     Dates: start: 20241109, end: 20241114
  8. UNSPECIFIED INGREDIENT [Concomitant]
     Active Substance: UNSPECIFIED INGREDIENT
     Indication: Prophylaxis
     Dosage: UNK
     Route: 065
  9. ALPROSTADIL [Concomitant]
     Active Substance: ALPROSTADIL
     Indication: Prophylaxis
     Dosage: UNK
     Route: 065

REACTIONS (4)
  - Myelosuppression [Recovering/Resolving]
  - Platelet count decreased [Recovering/Resolving]
  - White blood cell count decreased [Recovering/Resolving]
  - Off label use [Unknown]
